FAERS Safety Report 6203756-0 (Version None)
Quarter: 2009Q2

REPORT INFORMATION
  Report Type: 
  Country: None (occurrence: None)
  Receive Date: 20090526
  Receipt Date: 20090526
  Transmission Date: 20091009
  Serious: Yes (Other)
  Sender: FDA-Public Use
  Company Number: None

PATIENT
  Age: 39 Year
  Sex: Female
  Weight: 63.5036 kg

DRUGS (2)
  1. REGLAN [Suspect]
     Indication: VOMITING
     Dates: start: 20070310, end: 20070310
  2. NEURONTIN [Suspect]
     Dates: start: 20070310, end: 20070310

REACTIONS (10)
  - DIZZINESS [None]
  - DYSKINESIA [None]
  - EAR PAIN [None]
  - EYE ROLLING [None]
  - FEELING ABNORMAL [None]
  - HEARING IMPAIRED [None]
  - MUSCLE TWITCHING [None]
  - NERVOUS SYSTEM DISORDER [None]
  - PHOTOPHOBIA [None]
  - VISION BLURRED [None]
